FAERS Safety Report 24369848 (Version 1)
Quarter: 2024Q3

REPORT INFORMATION
  Report Type: Spontaneous
  Country: EG (occurrence: EG)
  Receive Date: 20240927
  Receipt Date: 20240927
  Transmission Date: 20241017
  Serious: Yes (Life-Threatening)
  Sender: GE HEALTHCARE
  Company Number: EG-GE HEALTHCARE-2024CSU010857

PATIENT
  Sex: Male

DRUGS (2)
  1. OMNIPAQUE [Suspect]
     Active Substance: IOHEXOL
     Indication: Diagnostic procedure
     Dosage: UNK, TOTAL
     Route: 065
  2. OMNIPAQUE [Suspect]
     Active Substance: IOHEXOL
     Indication: Diagnostic procedure
     Dosage: UNK, TOTAL
     Route: 065

REACTIONS (9)
  - Anal incontinence [Unknown]
  - Urinary incontinence [Unknown]
  - Altered state of consciousness [Unknown]
  - Shock [Unknown]
  - Dyspnoea [Unknown]
  - Hypotension [Unknown]
  - Bone pain [Unknown]
  - Vomiting [Unknown]
  - Pyrexia [Unknown]
